FAERS Safety Report 12682112 (Version 1)
Quarter: 2016Q3

REPORT INFORMATION
  Report Type: Spontaneous
  Country: US (occurrence: US)
  Receive Date: 20160824
  Receipt Date: 20160824
  Transmission Date: 20161109
  Serious: No
  Sender: FDA-Public Use
  Company Number: US-009507513-1608USA007045

PATIENT
  Age: 57 Year
  Sex: Female

DRUGS (2)
  1. ZETIA [Suspect]
     Active Substance: EZETIMIBE
     Indication: LOW DENSITY LIPOPROTEIN INCREASED
     Dosage: 1 DF, QPM
     Route: 048
     Dates: start: 201603, end: 2016
  2. LESCOL XL [Concomitant]
     Active Substance: FLUVASTATIN SODIUM

REACTIONS (1)
  - Female orgasmic disorder [Recovered/Resolved]

NARRATIVE: CASE EVENT DATE: 2016
